FAERS Safety Report 10219645 (Version 2)
Quarter: 2014Q4

REPORT INFORMATION
  Report Type: Report from Study
  Country: CA (occurrence: CA)
  Receive Date: 20140605
  Receipt Date: 20141118
  Transmission Date: 20150528
  Serious: Yes (Other)
  Sender: FDA-Public Use
  Company Number: CA-BRISTOL-MYERS SQUIBB COMPANY-20880852

PATIENT
  Age: 54 Year
  Sex: Female

DRUGS (9)
  1. SINGULAIR [Concomitant]
     Active Substance: MONTELUKAST SODIUM
  2. MICARDIS [Concomitant]
     Active Substance: TELMISARTAN
  3. PREDNISONE. [Concomitant]
     Active Substance: PREDNISONE
  4. MAXALT [Concomitant]
     Active Substance: RIZATRIPTAN BENZOATE
  5. NEXIUM [Concomitant]
     Active Substance: ESOMEPRAZOLE MAGNESIUM
  6. ACETAMINOPHEN. [Concomitant]
     Active Substance: ACETAMINOPHEN
  7. ORENCIA [Suspect]
     Active Substance: ABATACEPT
     Indication: RHEUMATOID ARTHRITIS
     Dosage: 4C89734,AUG-2016
     Route: 042
     Dates: start: 20090402
  8. METHOTREXATE [Concomitant]
     Active Substance: METHOTREXATE
  9. CELEBREX [Concomitant]
     Active Substance: CELECOXIB

REACTIONS (2)
  - Arthropathy [Unknown]
  - Cellulitis [Unknown]

NARRATIVE: CASE EVENT DATE: 2011
